FAERS Safety Report 4979112-X (Version None)
Quarter: 2006Q2

REPORT INFORMATION
  Report Type: 
  Country: None (occurrence: None)
  Receive Date: 20060418
  Receipt Date: 20060406
  Transmission Date: 20061013
  Serious: Yes (Hospitalization)
  Sender: FDA-Public Use
  Company Number: S06-FRA-01381-01

PATIENT
  Age: 83 Year
  Sex: Female

DRUGS (3)
  1. CITALOPRAM HYDROBROMIDE [Suspect]
     Indication: DYSTHYMIC DISORDER
     Dosage: 20 MG QD PO
     Route: 048
     Dates: start: 20060204, end: 20060205
  2. DILTIAZEM HYDROCHLORIDE [Concomitant]
  3. KARDEGIC (ACETYLSALICYLATE LYSINE) [Concomitant]

REACTIONS (7)
  - ALANINE AMINOTRANSFERASE INCREASED [None]
  - ASPARTATE AMINOTRANSFERASE INCREASED [None]
  - BLOOD CREATINE PHOSPHOKINASE INCREASED [None]
  - EOSINOPHIL COUNT INCREASED [None]
  - PRURIGO [None]
  - RASH GENERALISED [None]
  - URTICARIA [None]
